FAERS Safety Report 4914595-2 (Version None)
Quarter: 2006Q1

REPORT INFORMATION
  Report Type: 
  Country: None (occurrence: None)
  Receive Date: 20060216
  Receipt Date: 20050117
  Transmission Date: 20060701
  Serious: Yes (Death, Hospitalization, Other)
  Sender: FDA-Public Use
  Company Number: US-MERCK-0501USA02711

PATIENT
  Age: 83 Year
  Sex: Female
  Weight: 53 kg

DRUGS (13)
  1. VIOXX [Suspect]
     Indication: ARTHRITIS
     Route: 048
     Dates: start: 20010601, end: 20011227
  2. VIOXX [Suspect]
     Indication: INFLAMMATION
     Route: 048
     Dates: start: 20010601, end: 20011227
  3. PREMARIN [Concomitant]
     Route: 065
  4. PROVERA [Concomitant]
     Route: 065
  5. RISPERDAL [Concomitant]
     Route: 065
  6. PREDNISONE [Concomitant]
     Route: 065
  7. REMERON [Concomitant]
     Route: 065
  8. OXYCONTIN [Concomitant]
     Route: 065
  9. AMBIEN [Concomitant]
     Route: 065
  10. ASPIRIN [Concomitant]
     Route: 065
  11. BEANO [Concomitant]
     Route: 065
  12. CENTRUM [Concomitant]
     Route: 065
  13. CALCIUM (UNSPECIFIED) [Concomitant]
     Route: 065

REACTIONS (10)
  - CARDIAC FAILURE CONGESTIVE [None]
  - CARDIOGENIC SHOCK [None]
  - CEREBROVASCULAR ACCIDENT [None]
  - DEATH [None]
  - DEMENTIA ALZHEIMER'S TYPE [None]
  - INTESTINAL PERFORATION [None]
  - MYOCARDIAL INFARCTION [None]
  - PNEUMONIA [None]
  - PULMONARY OEDEMA [None]
  - RENAL FAILURE ACUTE [None]
